FAERS Safety Report 6618634-2 (Version None)
Quarter: 2010Q1

REPORT INFORMATION
  Report Type: 
  Country: None (occurrence: None)
  Receive Date: 20100308
  Receipt Date: 20100228
  Transmission Date: 20100710
  Serious: Yes (Hospitalization)
  Sender: FDA-Public Use
  Company Number: CA-ROCHE-649177

PATIENT
  Sex: Male
  Weight: 61.8 kg

DRUGS (17)
  1. CAPECITABINE [Suspect]
     Indication: COLORECTAL CANCER
     Dosage: LAST DOSE: 10 MAY 2009
     Route: 048
     Dates: start: 20090406
  2. BEVACIZUMAB [Suspect]
     Indication: COLORECTAL CANCER
     Dosage: FREQUENCY: DAY 1,15 AND 29
     Route: 042
     Dates: start: 20090324
  3. OXALIPLATIN [Suspect]
     Indication: COLORECTAL CANCER
     Dosage: LAST DOSE: 05 MAY 2009
     Route: 065
     Dates: start: 20090406
  4. EFFEXOR [Concomitant]
     Indication: DEPRESSION
     Route: 048
     Dates: start: 19990101
  5. ZOPIDONE [Concomitant]
     Indication: SLEEP DISORDER
     Route: 048
     Dates: start: 20090301
  6. TRAMACET [Concomitant]
     Indication: PAIN
     Dosage: DOSE: 1 TABLET
     Route: 048
     Dates: start: 20090301, end: 20090323
  7. TYLENOL-500 [Concomitant]
     Indication: PAIN
     Dosage: FREQUENCY: PRN (AS NECESSARY)
     Route: 048
     Dates: start: 20090101, end: 20090601
  8. VITAMIN B COMPLEX CAP [Concomitant]
     Dosage: DOSE: 1 TABLET
     Route: 048
     Dates: start: 19840101
  9. VITAMIN A [Concomitant]
     Route: 048
     Dates: start: 19840101
  10. GLUCOSAMINE [Concomitant]
     Indication: PAIN
     Route: 048
     Dates: start: 19990101, end: 20090624
  11. VITAMIN C [Concomitant]
     Route: 048
     Dates: start: 20090101
  12. VITAMIN E [Concomitant]
     Route: 048
     Dates: start: 19840101, end: 20090624
  13. AMLODIPINE [Concomitant]
     Indication: HYPERTENSION
     Route: 048
     Dates: start: 20090301, end: 20090301
  14. AMLODIPINE [Concomitant]
     Route: 048
     Dates: start: 20090330, end: 20090624
  15. TRAMACET [Concomitant]
     Dosage: DOSE:4-6/D AS NECESSARY
     Route: 048
     Dates: start: 20090324, end: 20090601
  16. IMODIUM [Concomitant]
     Dosage: FREQUENCY: AS NECESSARY
     Route: 048
     Dates: start: 20090421, end: 20090421
  17. TAMSULOSIN HCL [Concomitant]

REACTIONS (4)
  - ABSCESS INTESTINAL [None]
  - GASTROINTESTINAL STOMA COMPLICATION [None]
  - NECROSIS [None]
  - PELVIC HAEMATOMA [None]
